FAERS Safety Report 19784344 (Version 1)
Quarter: 2021Q3

REPORT INFORMATION
  Report Type: Spontaneous
  Country: US (occurrence: US)
  Receive Date: 20210903
  Receipt Date: 20210903
  Transmission Date: 20211014
  Serious: No
  Sender: FDA-Public Use
  Company Number: US-009507513-2108USA003383

PATIENT
  Age: 77 Year
  Sex: Female

DRUGS (1)
  1. KEYTRUDA [Suspect]
     Active Substance: PEMBROLIZUMAB
     Indication: NEUROENDOCRINE CARCINOMA OF THE SKIN
     Dosage: 200 MILLIGRAM, EVERY 3 WEEKS
     Route: 042

REACTIONS (3)
  - Lymphocytic infiltration [Unknown]
  - Immune-mediated dermatitis [Unknown]
  - Lichenoid keratosis [Unknown]
